FAERS Safety Report 10305353 (Version 1)
Quarter: 2014Q3

REPORT INFORMATION
  Report Type: Spontaneous
  Country: US (occurrence: None)
  Receive Date: 20140711
  Receipt Date: 20140711
  Transmission Date: 20150326
  Serious: Yes (Hospitalization)
  Sender: FDA-Public Use
  Company Number: None

PATIENT
  Age: 50 Year
  Sex: Male
  Weight: 97.5 kg

DRUGS (2)
  1. CYTARABINE. [Suspect]
     Active Substance: CYTARABINE
     Dates: end: 20140527
  2. DAUNORUBICIN [Suspect]
     Active Substance: DAUNORUBICIN
     Dates: end: 20140522

REACTIONS (13)
  - Cough [None]
  - Continuous haemodiafiltration [None]
  - Pyrexia [None]
  - Metapneumovirus infection [None]
  - Renal failure acute [None]
  - Hypertension [None]
  - Ejection fraction decreased [None]
  - Sinus tachycardia [None]
  - Hypotension [None]
  - Sepsis [None]
  - Non-cardiac chest pain [None]
  - Lung infection [None]
  - Respiratory failure [None]

NARRATIVE: CASE EVENT DATE: 20140616
